FAERS Safety Report 7820109-X (Version None)
Quarter: 2011Q4

REPORT INFORMATION
  Report Type: 
  Country: None (occurrence: None)
  Receive Date: 20111018
  Receipt Date: 20111013
  Transmission Date: 20120403
  Serious: Yes (Other)
  Sender: FDA-Public Use
  Company Number: BR-PFIZER INC-2011245907

PATIENT
  Age: 40 Year
  Sex: Female
  Weight: 65 kg

DRUGS (5)
  1. CLONAZEPAM [Concomitant]
  2. LEVONORGESTREL AND ETHINYL ESTRADIOL [Suspect]
     Indication: MENORRHAGIA
  3. ALPRAZOLAM [Concomitant]
  4. LEVONORGESTREL AND ETHINYL ESTRADIOL [Suspect]
     Indication: OFF LABEL USE
     Route: 048
  5. FLUOXETINE [Concomitant]

REACTIONS (2)
  - ANXIETY [None]
  - DYSPNOEA [None]
